FAERS Safety Report 6447253-6 (Version None)
Quarter: 2009Q4

REPORT INFORMATION
  Report Type: 
  Country: None (occurrence: None)
  Receive Date: 20091119
  Receipt Date: 20091110
  Transmission Date: 20100525
  Serious: Yes (Hospitalization)
  Sender: FDA-Public Use
  Company Number: US-PFIZER INC-2008081830

PATIENT
  Sex: Male
  Weight: 78.63 kg

DRUGS (11)
  1. *ERLOTINIB [Suspect]
     Indication: NON-SMALL CELL LUNG CANCER
     Dosage: 150 MG, 1X/DAY, DAILY
     Route: 048
     Dates: start: 20080904, end: 20080928
  2. BLINDED *NO SUBJECT DRUG [Suspect]
     Indication: NON-SMALL CELL LUNG CANCER
     Dosage: 37.5 MG, 1X/DAY
     Route: 048
     Dates: start: 20080904, end: 20080928
  3. BLINDED *PLACEBO [Suspect]
     Indication: NON-SMALL CELL LUNG CANCER
     Dosage: 37.5 MG, 1X/DAY
     Route: 048
     Dates: start: 20080904, end: 20080928
  4. BLINDED SUNITINIB MALATE [Suspect]
     Indication: NON-SMALL CELL LUNG CANCER
     Dosage: 37.5 MG, 1X/DAY
     Route: 048
     Dates: start: 20080904, end: 20080928
  5. TYLENOL W/ CODEINE [Concomitant]
     Route: 048
     Dates: start: 20080101
  6. BENADRYL [Concomitant]
     Route: 048
     Dates: start: 20080801
  7. MOTRIN [Concomitant]
     Route: 048
     Dates: start: 20030101
  8. XALATAN [Concomitant]
     Route: 047
     Dates: start: 20080401
  9. REMERON [Concomitant]
     Route: 048
     Dates: start: 20080911
  10. DOXYCYCLINE HYCLATE [Concomitant]
     Route: 048
     Dates: start: 20080925
  11. HYDROCORTISONE [Concomitant]
     Route: 061
     Dates: start: 20080925

REACTIONS (3)
  - CEREBRAL INFARCTION [None]
  - CONFUSIONAL STATE [None]
  - HYPONATRAEMIA [None]
